FAERS Safety Report 19218317 (Version 1)
Quarter: 2021Q2

REPORT INFORMATION
  Report Type: Report from Study
  Country: US (occurrence: US)
  Receive Date: 20210505
  Receipt Date: 20210505
  Transmission Date: 20210717
  Serious: Yes (Other)
  Sender: FDA-Public Use
  Company Number: US-HRARD-2021000030

PATIENT
  Age: 81 Year
  Sex: Female

DRUGS (2)
  1. LYSODREN [Suspect]
     Active Substance: MITOTANE
     Dosage: 500 MG TID
     Route: 048
     Dates: start: 20201023, end: 202103
  2. LYSODREN [Suspect]
     Active Substance: MITOTANE
     Dosage: 1000 MG TID
     Route: 048
     Dates: start: 20201002

REACTIONS (2)
  - Vomiting [Not Recovered/Not Resolved]
  - Weight decreased [Not Recovered/Not Resolved]

NARRATIVE: CASE EVENT DATE: 20210301
